FAERS Safety Report 19936977 (Version 3)
Quarter: 2021Q4

REPORT INFORMATION
  Report Type: Other
  Country: US (occurrence: US)
  Receive Date: 20211009
  Receipt Date: 20211027
  Transmission Date: 20220303
  Serious: Yes (Hospitalization)
  Sender: FDA-Public Use
  Company Number: US-NEUROCRINE BIOSCIENCES INC.-2021NBI05692

PATIENT

DRUGS (1)
  1. INGREZZA [Suspect]
     Active Substance: VALBENAZINE
     Indication: Tardive dyskinesia
     Dosage: 80 MILLIGRAM, QD
     Route: 048
     Dates: start: 20210511

REACTIONS (16)
  - Urinary tract infection [Recovered/Resolved]
  - Confusional state [Recovered/Resolved]
  - Dysarthria [Not Recovered/Not Resolved]
  - Dizziness [Recovered/Resolved]
  - Periorbital swelling [Not Recovered/Not Resolved]
  - Sluggishness [Not Recovered/Not Resolved]
  - Weight decreased [Not Recovered/Not Resolved]
  - Speech disorder [Unknown]
  - Mental disorder [Unknown]
  - Balance disorder [Unknown]
  - Therapeutic product effect incomplete [Unknown]
  - Arthralgia [Unknown]
  - Dyskinesia [Not Recovered/Not Resolved]
  - Insomnia [Not Recovered/Not Resolved]
  - Amnesia [Not Recovered/Not Resolved]
  - Somnolence [Not Recovered/Not Resolved]

NARRATIVE: CASE EVENT DATE: 20210921
